FAERS Safety Report 22642216 (Version 1)
Quarter: 2023Q2

REPORT INFORMATION
  Report Type: Spontaneous
  Country: US (occurrence: None)
  Receive Date: 20230623
  Receipt Date: 20230623
  Transmission Date: 20230721
  Serious: Yes (Other)
  Sender: FDA-Public Use
  Company Number: None

PATIENT
  Age: 7 Year
  Sex: Male

DRUGS (5)
  1. NUWIQ [Suspect]
     Active Substance: ANTIHEMOPHILIC FACTOR, HUMAN RECOMBINANT
     Indication: Acquired haemophilia
     Dosage: NUWIQ 1049 UNITSNIAL, 2 VIALS. INFUSE ONE 1049 UNIT VIAL INTRAVENOUSLY EVERY 12 HOURS AS NEEDED FOR?
     Dates: start: 20210423
  2. HEP LOCK SYR [Concomitant]
  3. SODIUM CHLORIDE [Concomitant]
     Active Substance: SODIUM CHLORIDE
  4. ZYRTEC ALLGY [Concomitant]
  5. FLSH SYR [Concomitant]

REACTIONS (2)
  - Haemarthrosis [None]
  - Joint injury [None]

NARRATIVE: CASE EVENT DATE: 20230621
